FAERS Safety Report 7325761-3 (Version None)
Quarter: 2011Q1

REPORT INFORMATION
  Report Type: 
  Country: None (occurrence: None)
  Receive Date: 20110302
  Receipt Date: 20110221
  Transmission Date: 20110831
  Serious: Yes (Other)
  Sender: FDA-Public Use
  Company Number: DE-TEVA-268129GER

PATIENT
  Age: 18 Year
  Sex: Male

DRUGS (2)
  1. METHOTREXATE [Suspect]
  2. ETANERCEPT [Suspect]
     Indication: JUVENILE ARTHRITIS

REACTIONS (1)
  - THYROID CANCER [None]
